FAERS Safety Report 4913989-9 (Version None)
Quarter: 2006Q1

REPORT INFORMATION
  Report Type: 
  Country: None (occurrence: None)
  Receive Date: 20060113
  Receipt Date: 20051115
  Transmission Date: 20060701
  Serious: No
  Sender: FDA-Public Use
  Company Number: 2005SP004005

PATIENT
  Age: 38 Year
  Sex: Female
  Weight: 62.5964 kg

DRUGS (2)
  1. LUNESTA [Suspect]
     Indication: INSOMNIA
     Dosage: HS; ORAL
     Route: 048
     Dates: start: 20050101, end: 20050101
  2. TOPAMAX [Concomitant]

REACTIONS (4)
  - BLINDNESS [None]
  - MIGRAINE [None]
  - PARAESTHESIA [None]
  - VERTIGO [None]
